FAERS Safety Report 9108883 (Version 5)
Quarter: 2014Q2

REPORT INFORMATION
  Report Type: Spontaneous
  Country: US (occurrence: US)
  Receive Date: 20130222
  Receipt Date: 20140627
  Transmission Date: 20141212
  Serious: Yes (Hospitalization, Other)
  Sender: FDA-Public Use
  Company Number: US-009507513-1302USA010033

PATIENT
  Sex: Female
  Weight: 75.57 kg

DRUGS (3)
  1. FOSAMAX [Suspect]
     Dosage: 5 MG, QD
     Route: 048
     Dates: start: 199807, end: 200301
  2. FOSAMAX [Suspect]
     Dosage: 70 MG, QW
     Route: 048
     Dates: start: 200301
  3. ALENDRONATE SODIUM [Suspect]
     Indication: OSTEOPENIA
     Dosage: 70 MG, QW
     Route: 048
     Dates: start: 200803, end: 201102

REACTIONS (18)
  - Femur fracture [Unknown]
  - Intramedullary rod insertion [Unknown]
  - Staphylococcal infection [Unknown]
  - Streptococcal infection [Unknown]
  - Rib fracture [Unknown]
  - Depression [Unknown]
  - Infection [Unknown]
  - Hypertension [Unknown]
  - X-ray abnormal [Unknown]
  - Osteoarthritis [Unknown]
  - Wrong technique in drug usage process [Unknown]
  - Osteomyelitis [Unknown]
  - Toe amputation [Unknown]
  - Hyperlipidaemia [Unknown]
  - Cellulitis [Unknown]
  - Osteoporosis [Unknown]
  - Joint swelling [Unknown]
  - Muscle spasms [Unknown]
